FAERS Safety Report 8546426-6 (Version None)
Quarter: 2012Q3

REPORT INFORMATION
  Report Type: 
  Country: None (occurrence: None)
  Receive Date: 20120727
  Receipt Date: 20120126
  Transmission Date: 20120928
  Serious: No
  Sender: FDA-Public Use
  Company Number: US-ASTRAZENECA-2012SE01504

PATIENT
  Age: 51 Year
  Sex: Female
  Weight: 76.2 kg

DRUGS (6)
  1. CLONAZEPAM [Concomitant]
  2. SEROQUEL [Suspect]
     Indication: SLEEP DISORDER
     Route: 048
  3. SEROQUEL [Suspect]
     Dosage: PART OF THE 200 MG
     Route: 048
  4. CLONIPINE [Concomitant]
  5. SEROQUEL [Suspect]
     Route: 048
  6. CYMBALTA [Concomitant]
     Indication: ANXIETY

REACTIONS (3)
  - WEIGHT INCREASED [None]
  - WRONG TECHNIQUE IN DRUG USAGE PROCESS [None]
  - OFF LABEL USE [None]
